FAERS Safety Report 23478158 (Version 1)
Quarter: 2024Q1

REPORT INFORMATION
  Report Type: Report from Study
  Country: US (occurrence: US)
  Receive Date: 20240204
  Receipt Date: 20240204
  Transmission Date: 20240410
  Serious: No
  Sender: FDA-Public Use
  Company Number: US-EXELIXIS-CABO-23069025

PATIENT
  Sex: Male

DRUGS (2)
  1. CABOMETYX [Suspect]
     Active Substance: CABOZANTINIB S-MALATE
     Indication: Renal cancer
     Dosage: 20 MG (ONE TABLET ONCE DAILY FOR 3 WEEKS ON, FOLLOWED BY 1 WEEK OFF)
     Route: 048
     Dates: start: 202201
  2. CABOMETYX [Suspect]
     Active Substance: CABOZANTINIB S-MALATE
     Indication: Malignant urinary tract neoplasm

REACTIONS (2)
  - Hepatic enzyme increased [Unknown]
  - Inappropriate schedule of product administration [Unknown]
